FAERS Safety Report 23324745 (Version 1)
Quarter: 2023Q4

REPORT INFORMATION
  Report Type: Other
  Country: US (occurrence: US)
  Receive Date: 20231221
  Receipt Date: 20231221
  Transmission Date: 20240110
  Serious: Yes (Other)
  Sender: FDA-Public Use
  Company Number: US-drreddys-LIT/USA/22/0150471

PATIENT
  Age: 92 Year
  Sex: Male

DRUGS (1)
  1. AMIODARONE [Suspect]
     Active Substance: AMIODARONE
     Indication: Atrial fibrillation

REACTIONS (5)
  - Hypertransaminasaemia [Recovering/Resolving]
  - Toxicity to various agents [Recovering/Resolving]
  - Hypothyroidism [Recovering/Resolving]
  - Interstitial lung disease [Not Recovered/Not Resolved]
  - Pulmonary toxicity [Not Recovered/Not Resolved]
